FAERS Safety Report 9444544 (Version 1)
Quarter: 2013Q3

REPORT INFORMATION
  Report Type: Spontaneous
  Country: US (occurrence: None)
  Receive Date: 20130806
  Receipt Date: 20130806
  Transmission Date: 20140515
  Serious: Yes (Hospitalization)
  Sender: FDA-Public Use
  Company Number: None

PATIENT
  Age: 85 Year
  Sex: Female
  Weight: 70 kg

DRUGS (10)
  1. PAROXETINE [Suspect]
     Indication: DEPRESSION
     Dosage: 1  QD ORAL
     Route: 048
     Dates: start: 20130721, end: 20130729
  2. AMLODIPINE [Concomitant]
  3. ASA [Concomitant]
  4. FAMOTIDINE [Concomitant]
  5. LEVOTHYROXINE [Concomitant]
  6. LORAZEPAM [Concomitant]
  7. ONDANSETRON [Concomitant]
  8. AZOPT [Concomitant]
  9. XALATAN [Concomitant]
  10. TIMOPTIC [Concomitant]

REACTIONS (1)
  - Inappropriate antidiuretic hormone secretion [None]
